FAERS Safety Report 7487319-5 (Version None)
Quarter: 2011Q2

REPORT INFORMATION
  Report Type: 
  Country: None (occurrence: None)
  Receive Date: 20110510
  Receipt Date: 20110428
  Transmission Date: 20111010
  Serious: Yes (Hospitalization)
  Sender: FDA-Public Use
  Company Number: DSA_45537_2011

PATIENT
  Sex: Female

DRUGS (2)
  1. SEROQUEL [Concomitant]
  2. WELLBUTRIN SR [Suspect]
     Indication: BIPOLAR DISORDER
     Dosage: (150 MG QD ORAL)
     Route: 048
     Dates: start: 20110414, end: 20110417

REACTIONS (2)
  - DEPRESSED LEVEL OF CONSCIOUSNESS [None]
  - HYPOGLYCAEMIA [None]
